FAERS Safety Report 16154296 (Version 1)
Quarter: 2019Q2

REPORT INFORMATION
  Report Type: Report from Study
  Country: GB (occurrence: GB)
  Receive Date: 20190403
  Receipt Date: 20190403
  Transmission Date: 20190711
  Serious: Yes (Other)
  Sender: FDA-Public Use
  Company Number: PHHY2019GB075691

PATIENT
  Age: 51 Year
  Sex: Male
  Weight: 76.5 kg

DRUGS (2)
  1. HYRIMOZ [Suspect]
     Active Substance: ADALIMUMAB-ADAZ
     Indication: SPONDYLOARTHROPATHY
     Dosage: 40 MG, FORTNIGHTLY
     Route: 058
     Dates: start: 20190314
  2. HYRIMOZ [Suspect]
     Active Substance: ADALIMUMAB-ADAZ
     Dosage: 40 MG, FORTNIGHTLY
     Route: 058
     Dates: start: 20190314

REACTIONS (1)
  - Fatigue [Recovered/Resolved]

NARRATIVE: CASE EVENT DATE: 20190328
